FAERS Safety Report 12856694 (Version 1)
Quarter: 2016Q4

REPORT INFORMATION
  Report Type: Spontaneous
  Country: US (occurrence: US)
  Receive Date: 20161018
  Receipt Date: 20161018
  Transmission Date: 20170207
  Serious: Yes (Other)
  Sender: FDA-Public Use
  Company Number: None

PATIENT
  Age: 74 Year
  Sex: Female
  Weight: 74.84 kg

DRUGS (7)
  1. MAGNESIUM [Concomitant]
     Active Substance: MAGNESIUM
  2. AMLODIPINE [Concomitant]
     Active Substance: AMLODIPINE BESYLATE
  3. LEVOTHYROXINE. [Concomitant]
     Active Substance: LEVOTHYROXINE
  4. BAYER FOR WOMEN OVER 50 MULTIVITAMIN [Concomitant]
  5. LISINOPRIL TAB 20 MG SOLCO PRINSTON PHARMACEUTICALS [Suspect]
     Active Substance: LISINOPRIL
     Indication: HYPERTENSION
     Dosage: LOT NUMBERS V190199276-1, 0102011, 501-021024 - RX# 135167891?          QUANTITY:I LOT/?1W;?
     Route: 048
     Dates: start: 20160715, end: 20160901
  6. VITAMIN D3 [Concomitant]
     Active Substance: CHOLECALCIFEROL
  7. BAYER ASPIRIN [Concomitant]
     Active Substance: ASPIRIN

REACTIONS (5)
  - Wrong technique in product usage process [None]
  - Migraine [None]
  - Toothache [None]
  - Pain in jaw [None]
  - Muscle tightness [None]

NARRATIVE: CASE EVENT DATE: 20160715
